FAERS Safety Report 21704564 (Version 1)
Quarter: 2022Q4

REPORT INFORMATION
  Report Type: Spontaneous
  Country: US (occurrence: None)
  Receive Date: 20221207
  Receipt Date: 20221207
  Transmission Date: 20230113
  Serious: Yes (Hospitalization, Other)
  Sender: FDA-Public Use
  Company Number: None

PATIENT
  Age: 42 Year
  Sex: Female
  Weight: 68.04 kg

DRUGS (1)
  1. EXTRA STRENGTH ACETAMINOPHEN [Suspect]
     Active Substance: ACETAMINOPHEN
     Indication: Pyrexia
     Dosage: FREQUENCY : AT BEDTIME;?
     Route: 048
     Dates: start: 20221206, end: 20221206

REACTIONS (3)
  - Abdominal pain upper [None]
  - Loss of consciousness [None]
  - Influenza [None]

NARRATIVE: CASE EVENT DATE: 20221207
